FAERS Safety Report 9268405 (Version 2)
Quarter: 2014Q1

REPORT INFORMATION
  Report Type: Report from Study
  Country: US (occurrence: US)
  Receive Date: 20130502
  Receipt Date: 20140213
  Transmission Date: 20141002
  Serious: Yes (Hospitalization)
  Sender: FDA-Public Use
  Company Number: US-ALEXION-A201202289

PATIENT
  Age: 45 Year
  Sex: Female
  Weight: 77 kg

DRUGS (11)
  1. SOLIRIS [Suspect]
     Indication: PAROXYSMAL NOCTURNAL HAEMOGLOBINURIA
     Dosage: 900 MG, Q2W
     Route: 042
  2. ADVAIR [Concomitant]
     Dosage: UNK
     Route: 055
  3. ALBUTEROL [Concomitant]
     Dosage: UNK
     Route: 055
  4. BENADRYL [Concomitant]
     Dosage: 25 MG, QID, PRN
     Route: 048
  5. DILAUDID [Concomitant]
     Indication: PAIN
     Dosage: 2 MG TABLETS, ONE Q3-4 HOURS PRN
     Route: 048
  6. EXJADE [Concomitant]
     Dosage: 500 MG, TID
     Route: 048
  7. FOLIC ACID [Concomitant]
     Dosage: UNK
     Route: 048
  8. LOVENOX [Concomitant]
     Dosage: 100 MG, QD
     Route: 058
  9. MULTIVITAMIN [Concomitant]
     Route: 048
  10. PAXIL [Concomitant]
     Dosage: 10 MG, QD
     Route: 048
  11. PHENERGAN [Concomitant]
     Dosage: UNK

REACTIONS (6)
  - Transfusion reaction [Recovered/Resolved with Sequelae]
  - Small intestinal resection [Unknown]
  - Chest pain [Unknown]
  - Pyelonephritis [Unknown]
  - Abdominal pain [Unknown]
  - Back pain [Unknown]
